FAERS Safety Report 9118019 (Version 1)
Quarter: 2013Q1

REPORT INFORMATION
  Report Type: Report from Study
  Country: US (occurrence: US)
  Receive Date: 20130129
  Receipt Date: 20130129
  Transmission Date: 20140127
  Serious: No
  Sender: FDA-Public Use
  Company Number: US-ABBOTT-12P-163-0936989-00

PATIENT
  Age: 54 Year
  Sex: Female

DRUGS (21)
  1. HUMIRA 40 MG/0.8 ML PEN [Suspect]
     Indication: CROHN^S DISEASE
     Dates: start: 20120419
  2. GABAPENTIN [Concomitant]
     Indication: DIABETIC NEUROPATHY
  3. ASACOL [Concomitant]
     Indication: CROHN^S DISEASE
  4. ULTRAM [Concomitant]
     Indication: PRODUCT USED FOR UNKNOWN INDICATION
     Dosage: 300MG 1 TAB DAILY
  5. SINGULAIR [Concomitant]
     Indication: HYPERSENSITIVITY
     Dosage: 10MG 1 TAB DAILY
  6. WELLBUTRIN [Concomitant]
     Indication: DEPRESSION
     Dosage: 300MG 1 TAB DAILY
  7. LAMICTAL [Concomitant]
     Indication: MOOD SWINGS
     Dosage: 2 TABS IN MORNING
  8. LIPITOR [Concomitant]
     Indication: BLOOD CHOLESTEROL INCREASED
     Dosage: 1 TAB AT NIGHT
  9. ADVAIR [Concomitant]
     Indication: ASTHMA
     Dosage: 250 - 1 PUFF TWICE DAILY
  10. MEGA 50 PLUS WOMEN COMPLETE MULTIVITAMIN [Concomitant]
     Indication: PRODUCT USED FOR UNKNOWN INDICATION
  11. ECOTRIN [Concomitant]
     Indication: CEREBROVASCULAR ACCIDENT PROPHYLAXIS
     Dosage: 181MG 1 TAB DAILY
  12. FOLIC ACID [Concomitant]
     Indication: PRODUCT USED FOR UNKNOWN INDICATION
     Dosage: 200MG 1 TAB DAILY
  13. B1 [Concomitant]
     Indication: HYPOVITAMINOSIS
     Dosage: 100MG 1 TAB DAILY
  14. LEVOTHYROXINE [Concomitant]
     Indication: HYPOTHYROIDISM
     Dosage: 150MCG 1 TAB DAILY
  15. VAGIFEM [Concomitant]
     Indication: PRODUCT USED FOR UNKNOWN INDICATION
  16. VESICARE [Concomitant]
     Indication: BLADDER SPASM
     Dosage: 10MG 1 TAB DAILY
  17. XOPENEX HSA [Concomitant]
     Indication: ASTHMA
     Route: 055
  18. TYLENOL #3 [Concomitant]
     Indication: NEUROPATHY PERIPHERAL
  19. LEVEMIR [Concomitant]
     Indication: DIABETES MELLITUS
     Dosage: 30 UNITS IN MORNING, 15 UNITS IN EVENING
  20. NOVOLOG SLIDING SCALE [Concomitant]
     Indication: DIABETES MELLITUS
     Dosage: DAILY
  21. ACIPHEX [Concomitant]
     Indication: HIATUS HERNIA

REACTIONS (5)
  - Retching [Recovering/Resolving]
  - Migraine [Recovering/Resolving]
  - Nausea [Recovering/Resolving]
  - Headache [Recovering/Resolving]
  - Sinusitis [Recovering/Resolving]
